FAERS Safety Report 7399798-2 (Version None)
Quarter: 2011Q2

REPORT INFORMATION
  Report Type: 
  Country: None (occurrence: None)
  Receive Date: 20110407
  Receipt Date: 20110325
  Transmission Date: 20111010
  Serious: Yes (Hospitalization)
  Sender: FDA-Public Use
  Company Number: JP-ROCHE-768804

PATIENT
  Sex: Female

DRUGS (40)
  1. TOCILIZUMAB [Suspect]
     Route: 041
     Dates: start: 20090731, end: 20090731
  2. METHYLPREDNISOLONE [Suspect]
     Indication: RHEUMATOID ARTHRITIS
     Dosage: DRUG: MEDROL
     Route: 048
     Dates: end: 20090409
  3. METHYLPREDNISOLONE [Suspect]
     Route: 048
     Dates: start: 20090731, end: 20090923
  4. DEXAMETHASONE SODIUM PHOSPHATE [Suspect]
     Dosage: DRUG: DECADRON
     Route: 041
     Dates: start: 20090207, end: 20090207
  5. DEXAMETHASONE SODIUM PHOSPHATE [Suspect]
     Route: 041
     Dates: start: 20090210
  6. BROMFENAC SODIUM [Concomitant]
     Dosage: DRUG:BRONUCK(BROMFENAC SODIUM HYDRATE), DOSE FORM: EYE DROP,TAKEN AS NEEDED
     Route: 047
     Dates: start: 20090120
  7. LASIX [Concomitant]
     Dosage: DOSE FORM: MINUTE GRAIN
     Route: 048
     Dates: start: 20090403, end: 20090409
  8. LASIX [Concomitant]
     Route: 048
     Dates: start: 20090410
  9. TOCILIZUMAB [Suspect]
     Route: 041
     Dates: start: 20091023, end: 20091023
  10. BAKTAR [Concomitant]
     Route: 048
  11. TOCILIZUMAB [Suspect]
     Route: 041
     Dates: start: 20090605, end: 20090605
  12. METHYLPREDNISOLONE [Suspect]
     Route: 048
     Dates: start: 20090410, end: 20090730
  13. CELCOX [Concomitant]
     Dosage: DRUG: CELECOX
     Route: 048
  14. OLMETEC [Concomitant]
     Route: 048
  15. AMARYL [Concomitant]
     Route: 048
  16. OPALMON [Concomitant]
     Dosage: DRUG: LIMAPROST ALFADEX
     Route: 048
     Dates: start: 20090918
  17. TOCILIZUMAB [Suspect]
     Indication: RHEUMATOID ARTHRITIS
     Route: 041
     Dates: start: 20090415, end: 20090415
  18. METHYLPREDNISOLONE [Suspect]
     Route: 048
     Dates: start: 20090801, end: 20090924
  19. METHYLPREDNISOLONE [Suspect]
     Route: 048
     Dates: start: 20090925
  20. TACROLIMUS [Suspect]
     Route: 048
     Dates: start: 20090327, end: 20090410
  21. ZOVIRAX [Concomitant]
     Dosage: DOSE FORM;EYE DROP, TAKEN AS NEEDED
     Route: 047
     Dates: start: 20090120
  22. VOLTAREN [Concomitant]
     Dosage: DRUG: DICLOFENAC SODIUM, TAKEN AS NEEDED, DOSE FORM:SUPPOSITORIAE RECTALEY
     Route: 054
  23. HYALEIN [Concomitant]
     Dosage: TAKEN AS NEEDED, DOSE FORM:EYE DROP
     Route: 047
     Dates: start: 20090623
  24. TOCILIZUMAB [Suspect]
     Route: 041
     Dates: start: 20090703, end: 20090703
  25. METHYLPREDNISOLONE [Suspect]
     Route: 048
     Dates: start: 20090926
  26. GASTER D [Concomitant]
     Route: 048
  27. ARTIST [Concomitant]
     Route: 048
  28. TOCILIZUMAB [Suspect]
     Route: 041
     Dates: start: 20090508, end: 20090508
  29. TOCILIZUMAB [Suspect]
     Route: 041
     Dates: start: 20091120, end: 20091120
  30. TOCILIZUMAB [Suspect]
     Route: 041
     Dates: start: 20091211, end: 20091211
  31. LIPITOR [Concomitant]
     Dosage: DRUG: ATORVASTATIN CALCIUM
     Route: 048
  32. NEUROTROPIN [Concomitant]
     Dosage: INTRAVENOUS (NOT OTHERWISE SPECIFIED), TAKEN AS NEEDED
     Route: 042
     Dates: start: 20090210
  33. TOCILIZUMAB [Suspect]
     Route: 041
     Dates: start: 20090828, end: 20090828
  34. TOCILIZUMAB [Suspect]
     Route: 041
     Dates: start: 20090925, end: 20090925
  35. TOCILIZUMAB [Suspect]
     Route: 041
     Dates: start: 20100108, end: 20100108
  36. METHYLPREDNISOLONE [Suspect]
     Route: 048
     Dates: end: 20090409
  37. TACROLIMUS [Suspect]
     Indication: RHEUMATOID ARTHRITIS
     Dosage: DRUG: PROGRAF(TACROLIMUS HYDRATE)
     Route: 048
     Dates: end: 20090312
  38. PAXIL [Concomitant]
     Dosage: DRUG: PAROXETINE HYDROCHLORIDE HYDRATE
     Route: 048
  39. ELCITONIN [Concomitant]
     Dosage: DRUG: ELCITONIN INJ.20S(ELCATONIN)
     Route: 030
     Dates: start: 20090218
  40. VOLTAREN [Concomitant]
     Dosage: DOSE FORM:JELLY, TAKEN AS NEEDED,DICLOFENAC SODIUM
     Route: 003
     Dates: start: 20090401

REACTIONS (3)
  - UPPER RESPIRATORY TRACT INFLAMMATION [None]
  - ABSCESS LIMB [None]
  - BRONCHITIS [None]
